FAERS Safety Report 9676176 (Version 1)
Quarter: 2013Q4

REPORT INFORMATION
  Report Type: Spontaneous
  Country: US (occurrence: None)
  Receive Date: 20131105
  Receipt Date: 20131105
  Transmission Date: 20140711
  Serious: Yes (Other)
  Sender: FDA-Public Use
  Company Number: 001622831A

PATIENT
  Age: 54 Year
  Sex: Female

DRUGS (5)
  1. MB* ANTIOXIDANT DAY CREME SPF 20 [Suspect]
     Dosage: TWICE DAILY DERMAL
     Dates: start: 20131011
  2. MB* SKIN BRIGHTENING DECOLLETETE+NECK TREATMENT SPF 15 [Suspect]
     Dosage: TWICE DAILY DERMAL
     Dates: start: 20131011
  3. VICODIN [Concomitant]
  4. METHADONE [Concomitant]
  5. BACLOFEN [Concomitant]

REACTIONS (6)
  - Application site paraesthesia [None]
  - Lip swelling [None]
  - Swollen tongue [None]
  - Swelling face [None]
  - Eye swelling [None]
  - Throat tightness [None]
